FAERS Safety Report 21164031 (Version 1)
Quarter: 2022Q3

REPORT INFORMATION
  Report Type: Spontaneous
  Country: US (occurrence: None)
  Receive Date: 20220803
  Receipt Date: 20220803
  Transmission Date: 20221026
  Serious: No
  Sender: FDA-Public Use
  Company Number: 2022A257162

PATIENT
  Age: 24 Year
  Sex: Female

DRUGS (1)
  1. FASENRA [Suspect]
     Active Substance: BENRALIZUMAB
     Indication: Asthma
     Route: 058

REACTIONS (5)
  - Asthma [Unknown]
  - Eosinophil count abnormal [Unknown]
  - Urticaria [Unknown]
  - Pruritus [Unknown]
  - Blood immunoglobulin E increased [Unknown]
